FAERS Safety Report 18497245 (Version 2)
Quarter: 2020Q4

REPORT INFORMATION
  Report Type: Report from Study
  Country: CA (occurrence: CA)
  Receive Date: 20201112
  Receipt Date: 20201120
  Transmission Date: 20210114
  Serious: Yes (Other)
  Sender: FDA-Public Use
  Company Number: CA-JNJFOC-20201120150

PATIENT
  Age: 80 Year
  Sex: Male
  Weight: 71.9 kg

DRUGS (4)
  1. VENTOLIN [Suspect]
     Active Substance: ALBUTEROL SULFATE
     Indication: PNEUMONIA
     Dosage: 2 PUFFS
     Route: 045
     Dates: start: 20201019
  2. SIMPONI [Suspect]
     Active Substance: GOLIMUMAB
     Indication: RHEUMATOID ARTHRITIS
     Dosage: STRENGTH = 50 MG
     Route: 058
     Dates: start: 20150610
  3. METHOTREXATE. [Concomitant]
     Active Substance: METHOTREXATE
     Indication: RHEUMATOID ARTHRITIS
     Route: 058
  4. SYMBICORT [Suspect]
     Active Substance: BUDESONIDE\FORMOTEROL FUMARATE DIHYDRATE
     Indication: PNEUMONIA
     Dosage: 2 PUFFS
     Route: 045
     Dates: start: 20201019

REACTIONS (2)
  - Pneumonia [Recovered/Resolved]
  - Oral candidiasis [Recovered/Resolved]

NARRATIVE: CASE EVENT DATE: 2020
